FAERS Safety Report 5685036-5 (Version None)
Quarter: 2008Q1

REPORT INFORMATION
  Report Type: 
  Country: None (occurrence: None)
  Receive Date: 20080328
  Receipt Date: 19980721
  Transmission Date: 20080703
  Serious: Yes (Death)
  Sender: FDA-Public Use
  Company Number: US-ROCHE-103316

PATIENT
  Sex: Female

DRUGS (1)
  1. ZENAPAX [Suspect]
     Route: 065

REACTIONS (4)
  - DEATH [None]
  - HAEMATOMA [None]
  - HAEMORRHAGE [None]
  - RESPIRATORY DISORDER [None]
